FAERS Safety Report 13403323 (Version 1)
Quarter: 2017Q2

REPORT INFORMATION
  Report Type: Spontaneous
  Country: US (occurrence: US)
  Receive Date: 20170404
  Receipt Date: 20170404
  Transmission Date: 20170830
  Serious: Yes (Death)
  Sender: FDA-Public Use
  Company Number: None

PATIENT
  Age: 83 Year
  Sex: Male
  Weight: 120.6 kg

DRUGS (10)
  1. ONDANSETRON [Concomitant]
     Active Substance: ONDANSETRON
  2. NIVOLUMAB [Suspect]
     Active Substance: NIVOLUMAB
     Indication: NEUROENDOCRINE CARCINOMA OF THE SKIN
     Dosage: OTHER FREQUENCY:Q 14 DAYS;?
     Route: 041
     Dates: start: 20170329, end: 20170329
  3. METOPROLOL. [Concomitant]
     Active Substance: METOPROLOL
  4. IPILIMUMAB [Suspect]
     Active Substance: IPILIMUMAB
     Indication: NEUROENDOCRINE CARCINOMA OF THE SKIN
     Dosage: OTHER FREQUENCY:Q 6 WEEKS;?
     Route: 041
     Dates: start: 20170329, end: 20170329
  5. ATORVASTATIN [Concomitant]
     Active Substance: ATORVASTATIN
  6. ESOMEPRAZOLE [Concomitant]
     Active Substance: ESOMEPRAZOLE
  7. LORATADINE. [Concomitant]
     Active Substance: LORATADINE
  8. PROCHLORPERAZINE. [Concomitant]
     Active Substance: PROCHLORPERAZINE
  9. IRON POLYSACCHARIDES FOLIC ACID DHA [Concomitant]
     Active Substance: .ALPHA.-TOCOPHEROL ACETATE, DL-\.BETA.-CAROTENE\ASCORBIC ACID\CHOLECALCIFEROL\CUPRIC OXIDE\CYANOCOBALAMIN\DOCONEXENT\FOLIC ACID\IRON DEXTRAN\MAGNESIUM OXIDE\NIACINAMIDE\POTASSIUM IODIDE\PYRIDOXINE HYDROCHLORIDE\RIBOFLAVIN\THIAMINE MONONITRATE\ZINC OXIDE
  10. HYDROCHLOROTHIAZIDE-LOSARTAN [Concomitant]

REACTIONS (2)
  - Dyspnoea [None]
  - Unresponsive to stimuli [None]

NARRATIVE: CASE EVENT DATE: 20170401
